FAERS Safety Report 9518672 (Version 1)
Quarter: 2013Q3

REPORT INFORMATION
  Report Type: Spontaneous
  Country: US (occurrence: None)
  Receive Date: 20130912
  Receipt Date: 20130912
  Transmission Date: 20140515
  Serious: Yes (Other)
  Sender: FDA-Public Use
  Company Number: None

PATIENT
  Age: 43 Year
  Sex: Female
  Weight: 55.34 kg

DRUGS (9)
  1. DELTALONE [Suspect]
     Indication: JOINT INJECTION
     Dates: start: 20130905, end: 20130905
  2. LIDOCAINE [Suspect]
     Indication: JOINT INJECTION
     Dates: start: 20130905, end: 20130905
  3. CALCIUM-VITAMIN D [Concomitant]
  4. SPIRIVA [Concomitant]
  5. DEPAKOTE [Concomitant]
  6. CELEXA [Concomitant]
  7. ALBUTEROL HFA [Concomitant]
  8. BACLOFEN [Concomitant]
  9. LORTAB [Concomitant]

REACTIONS (4)
  - Injection site pain [None]
  - Injection site erythema [None]
  - Injection site swelling [None]
  - Injection site warmth [None]
